FAERS Safety Report 4627549-0 (Version None)
Quarter: 2005Q2

REPORT INFORMATION
  Report Type: 
  Country: None (occurrence: None)
  Receive Date: 20050405
  Receipt Date: 20050321
  Transmission Date: 20051028
  Serious: Yes (Hospitalization, Other)
  Sender: FDA-Public Use
  Company Number: 2005048138

PATIENT
  Age: 41 Year
  Sex: Female

DRUGS (1)
  1. GEODON [Suspect]
     Indication: BIPOLAR DISORDER
     Dosage: 160 MG (80 MG, 2 IN 1 D)
     Dates: start: 20050113, end: 20050321

REACTIONS (2)
  - BLOOD CHOLESTEROL INCREASED [None]
  - PULMONARY THROMBOSIS [None]
